FAERS Safety Report 11130693 (Version 1)
Quarter: 2015Q2

REPORT INFORMATION
  Report Type: Spontaneous
  Country: US (occurrence: None)
  Receive Date: 20150520
  Receipt Date: 20150520
  Transmission Date: 20150821
  Serious: Yes (Death, Hospitalization)
  Sender: FDA-Public Use
  Company Number: 2015US03559

PATIENT
  Sex: Male

DRUGS (1)
  1. DOXYCYCLINE. [Suspect]
     Active Substance: DOXYCYCLINE
     Indication: TICK-BORNE FEVER
     Dosage: 200 MG, EVERY 12 H FOR THE FIRST 24 H

REACTIONS (38)
  - Blood pressure increased [None]
  - Lactic acidosis [None]
  - Hypotension [None]
  - Fluid overload [None]
  - Syncope [None]
  - Pleural effusion [None]
  - Hyponatraemia [None]
  - Leukopenia [None]
  - Thrombocytopenia [None]
  - Multi-organ failure [None]
  - Dehydration [None]
  - Malaise [None]
  - Bone marrow failure [None]
  - Cardio-respiratory arrest [None]
  - Pulmonary congestion [None]
  - Renal impairment [None]
  - Depressed level of consciousness [None]
  - Abdominal lymphadenopathy [None]
  - Oedema [None]
  - Blood urea increased [None]
  - Acute respiratory distress syndrome [None]
  - Lymphadenopathy [None]
  - Hypokalaemia [None]
  - Electrocardiogram abnormal [None]
  - Aspartate aminotransferase increased [None]
  - Pyrexia [None]
  - Lymphopenia [None]
  - Decreased appetite [None]
  - Shock [None]
  - Ventricular tachycardia [None]
  - Pulseless electrical activity [None]
  - Rash papular [None]
  - Petechiae [None]
  - Rales [None]
  - Dyspnoea [None]
  - Alanine aminotransferase increased [None]
  - Atelectasis [None]
  - Rash maculo-papular [None]
